FAERS Safety Report 9260634 (Version 1)
Quarter: 2013Q2

REPORT INFORMATION
  Report Type: Spontaneous
  Country: US (occurrence: US)
  Receive Date: 20130429
  Receipt Date: 20130429
  Transmission Date: 20140414
  Serious: No
  Sender: FDA-Public Use
  Company Number: US-PFIZER INC-2013128288

PATIENT
  Age: 44 Year
  Sex: Male

DRUGS (1)
  1. ELLENCE [Suspect]
     Indication: GASTRIC CANCER
     Dosage: 50 MG, UNK
     Dates: start: 20121116

REACTIONS (2)
  - Disease progression [Unknown]
  - Gastric cancer [Unknown]
